FAERS Safety Report 15901324 (Version 1)
Quarter: 2019Q1

REPORT INFORMATION
  Report Type: Spontaneous
  Country: US (occurrence: US)
  Receive Date: 20190201
  Receipt Date: 20190201
  Transmission Date: 20190417
  Serious: Yes (Other)
  Sender: FDA-Public Use
  Company Number: US-APOPHARMA USA, INC.-2019AP006994

PATIENT
  Age: 52 Year
  Sex: Female

DRUGS (2)
  1. FILGRASTIM [Concomitant]
     Active Substance: FILGRASTIM
     Indication: HAEMATOPOIETIC STEM CELL MOBILISATION
     Route: 065
  2. ALKERAN [Suspect]
     Active Substance: MELPHALAN
     Indication: STEM CELL TRANSPLANT
     Dosage: 140 MG/KG, UNKNOWN
     Route: 065

REACTIONS (3)
  - Venoocclusive liver disease [Recovered/Resolved]
  - Enterobacter bacteraemia [Recovered/Resolved]
  - Staphylococcal bacteraemia [Recovered/Resolved]
